FAERS Safety Report 17840786 (Version 1)
Quarter: 2020Q2

REPORT INFORMATION
  Report Type: Report from Study
  Country: CA (occurrence: CA)
  Receive Date: 20200529
  Receipt Date: 20200529
  Transmission Date: 20200714
  Serious: Yes (Other)
  Sender: FDA-Public Use
  Company Number: CA-ASTELLAS-2020US018244

PATIENT
  Age: 3 Year
  Sex: Female

DRUGS (1)
  1. TACROLIMUS. [Suspect]
     Active Substance: TACROLIMUS
     Indication: LIVER TRANSPLANT
     Dosage: UNK UNK, UNKNOWN FREQ. (10-15 ?G/L FOR THE FIRST MONTH POST-TRANSPLANT AND 2-4 ?G/L AFTER 18 MONTHS)
     Route: 065

REACTIONS (2)
  - Immune-mediated adverse reaction [Not Recovered/Not Resolved]
  - Eczema [Not Recovered/Not Resolved]
